FAERS Safety Report 17680030 (Version 1)
Quarter: 2020Q2

REPORT INFORMATION
  Report Type: Report from Study
  Country: IT (occurrence: IT)
  Receive Date: 20200417
  Receipt Date: 20200417
  Transmission Date: 20200714
  Serious: Yes (Hospitalization)
  Sender: FDA-Public Use
  Company Number: IT-TEVA-2020-IT-1224433

PATIENT
  Age: 74 Year
  Sex: Female

DRUGS (9)
  1. SODIUM HYDROGEN CARBONATE [Concomitant]
     Active Substance: SODIUM BICARBONATE
  2. EZETIMIBE. [Concomitant]
     Active Substance: EZETIMIBE
  3. BRILIQUE 90 MG FILM-COATED TABLETS [Concomitant]
     Active Substance: TICAGRELOR
  4. ACETYLSALICYLIC ACID [Concomitant]
     Active Substance: ASPIRIN
  5. ESKIM 1000 MG CAPSULE MOLLI [Concomitant]
  6. RAMIPRIL. [Suspect]
     Active Substance: RAMIPRIL
     Indication: HYPERTENSION
     Dosage: 2.5 MG
     Route: 048
     Dates: start: 20130422, end: 20200124
  7. BISOPROLOL HEMIFUMARATE [Concomitant]
     Active Substance: BISOPROLOL FUMARATE
  8. ESOMEPRAZOLE SODIUM. [Concomitant]
     Active Substance: ESOMEPRAZOLE SODIUM
  9. LINAGLIPTIN [Concomitant]
     Active Substance: LINAGLIPTIN

REACTIONS (3)
  - Metabolic acidosis [Recovering/Resolving]
  - Hyperkalaemia [Recovering/Resolving]
  - Renal impairment [Recovering/Resolving]

NARRATIVE: CASE EVENT DATE: 20200124
